FAERS Safety Report 4982898-1 (Version None)
Quarter: 2006Q2

REPORT INFORMATION
  Report Type: 
  Country: None (occurrence: None)
  Receive Date: 20060420
  Receipt Date: 20060412
  Transmission Date: 20061013
  Serious: Yes (Other)
  Sender: FDA-Public Use
  Company Number: PCA0620718

PATIENT
  Sex: Female

DRUGS (1)
  1. NICOTINE POLACRILEX (MINT) [Suspect]
     Indication: SMOKING CESSATION THERAPY
     Dosage: 2 MG ORAL
     Route: 048
     Dates: start: 20050101, end: 20050101

REACTIONS (1)
  - MYOCARDIAL INFARCTION [None]
